FAERS Safety Report 9883846 (Version 1)
Quarter: 2014Q1

REPORT INFORMATION
  Report Type: Spontaneous
  Country: US (occurrence: US)
  Receive Date: 20140210
  Receipt Date: 20140210
  Transmission Date: 20141002
  Serious: Yes (Other)
  Sender: FDA-Public Use
  Company Number: US-BAYER-2014-015618

PATIENT
  Age: 24 Month
  Sex: Male

DRUGS (1)
  1. HELIXATE FS [Suspect]

REACTIONS (2)
  - Haemorrhage [Recovered/Resolved]
  - Inappropriate schedule of drug administration [Unknown]
